FAERS Safety Report 9243350 (Version 3)
Quarter: 2013Q2

REPORT INFORMATION
  Report Type: Spontaneous
  Country: AU (occurrence: AU)
  Receive Date: 20130420
  Receipt Date: 20130530
  Transmission Date: 20140414
  Serious: Yes (Hospitalization, Other)
  Sender: FDA-Public Use
  Company Number: AU-B.I. PHARMACEUTICALS,INC./RIDGEFIELD-2013-AU-00460AU

PATIENT
  Age: 81 Year
  Sex: Female
  Weight: 50.5 kg

DRUGS (8)
  1. PRADAXA [Suspect]
     Indication: ATRIAL FIBRILLATION
     Dosage: 220 MG
  2. KARVEA [Concomitant]
  3. LIPEX [Concomitant]
  4. SOMAC [Concomitant]
  5. TOPROL XL [Concomitant]
  6. SPIRIVA [Concomitant]
  7. ZANIDIP [Concomitant]
  8. TRAMAL SLOW RELEASE [Concomitant]

REACTIONS (3)
  - Deep vein thrombosis [Recovered/Resolved]
  - Nasopharyngitis [Unknown]
  - Nausea [Unknown]
